FAERS Safety Report 9222503 (Version 3)
Quarter: 2013Q2

REPORT INFORMATION
  Report Type: Report from Study
  Country: DE (occurrence: DE)
  Receive Date: 20130410
  Receipt Date: 20130503
  Transmission Date: 20140414
  Serious: Yes (Life-Threatening, Hospitalization)
  Sender: FDA-Public Use
  Company Number: DE-AMGEN-DEUCT2013024608

PATIENT
  Age: 60 Year
  Sex: Female

DRUGS (9)
  1. ETANERCEPT [Suspect]
     Indication: RHEUMATOID ARTHRITIS
     Dosage: 50 MG, QWK (EVERY 7 DAYS )
     Dates: end: 20130319
  2. HYDROXYCHLOROQUINE [Concomitant]
     Dosage: 200 MG DAILY
     Dates: end: 201303
  3. PREDNISOLONE [Concomitant]
     Dosage: UNK
  4. L-THYROXIN [Concomitant]
     Dosage: UNK
  5. DEKRISTOL [Concomitant]
     Dosage: UNK
  6. ACTIVELLE [Concomitant]
     Dosage: UNK
  7. FORMOTOP [Concomitant]
     Dosage: UNK
  8. INUVAIR [Concomitant]
     Dosage: UNK, AS NEEDED
  9. GLUCOSAMINE [Concomitant]
     Dosage: UNK

REACTIONS (1)
  - Squamous cell carcinoma of lung [Not Recovered/Not Resolved]
